FAERS Safety Report 7352007-2 (Version None)
Quarter: 2011Q1

REPORT INFORMATION
  Report Type: 
  Country: None (occurrence: None)
  Receive Date: 20110315
  Receipt Date: 20110308
  Transmission Date: 20110831
  Serious: Yes (Other)
  Sender: FDA-Public Use
  Company Number: US-PFIZER INC-2011021625

PATIENT
  Sex: Male

DRUGS (4)
  1. GEODON [Suspect]
     Dosage: UNK
     Dates: start: 20050101
  2. RISPERDAL [Suspect]
  3. SEROQUEL [Suspect]
  4. ABILIFY [Suspect]

REACTIONS (2)
  - AGRANULOCYTOSIS [None]
  - DRUG INEFFECTIVE [None]
